FAERS Safety Report 8146939-5 (Version None)
Quarter: 2012Q1

REPORT INFORMATION
  Report Type: 
  Country: None (occurrence: None)
  Receive Date: 20120217
  Receipt Date: 20120213
  Transmission Date: 20120608
  Serious: Yes (Hospitalization, Other)
  Sender: FDA-Public Use
  Company Number: DE-ABBOTT-11P-062-0879918-00

PATIENT
  Sex: Male

DRUGS (2)
  1. HUMIRA [Suspect]
     Indication: RHEUMATOID ARTHRITIS
     Dates: start: 20080414
  2. METHOTREXATE [Concomitant]
     Indication: PRODUCT USED FOR UNKNOWN INDICATION

REACTIONS (5)
  - KNEE ARTHROPLASTY [None]
  - POST PROCEDURAL INFECTION [None]
  - EXTRADURAL ABSCESS [None]
  - ANAEMIA POSTOPERATIVE [None]
  - STAPHYLOCOCCAL INFECTION [None]
